FAERS Safety Report 4553270-3 (Version None)
Quarter: 2005Q1

REPORT INFORMATION
  Report Type: 
  Country: None (occurrence: None)
  Receive Date: 20050113
  Receipt Date: 20050106
  Transmission Date: 20050727
  Serious: Yes (Hospitalization)
  Sender: FDA-Public Use
  Company Number: 2005-00055

PATIENT
  Age: 64 Year
  Sex: Male

DRUGS (1)
  1. TRELSTAR [Suspect]
     Indication: PROSTATE CANCER
     Dosage: 11.25 MG 91/3 MONTHS), INTRAMUSCULAR
     Route: 030
     Dates: start: 20040501, end: 20041025

REACTIONS (5)
  - ANTINUCLEAR ANTIBODY POSITIVE [None]
  - DRUG RASH WITH EOSINOPHILIA AND SYSTEMIC SYMPTOMS [None]
  - HEPATITIS [None]
  - INSOMNIA [None]
  - TOXOCARIASIS [None]
